FAERS Safety Report 18920008 (Version 1)
Quarter: 2021Q1

REPORT INFORMATION
  Report Type: Other
  Country: GB (occurrence: GB)
  Receive Date: 20210222
  Receipt Date: 20210222
  Transmission Date: 20210420
  Serious: Yes (Other)
  Sender: FDA-Public Use
  Company Number: GB-MACLEODS PHARMA UK LTD-MAC2021030192

PATIENT

DRUGS (14)
  1. OMEPRAZOLE. [Concomitant]
     Active Substance: OMEPRAZOLE
     Indication: ILL-DEFINED DISORDER
     Dosage: UNK
     Route: 065
  2. VITAMIN D3 [Concomitant]
     Active Substance: CHOLECALCIFEROL
     Indication: ILL-DEFINED DISORDER
     Dosage: UNK
     Route: 065
  3. ACCORD HEALTHCARE CLARITHROMYCIN [Concomitant]
     Indication: ILL-DEFINED DISORDER
     Dosage: UNK
     Route: 065
  4. IBUPROFEN. [Suspect]
     Active Substance: IBUPROFEN
     Indication: TENDON PAIN
     Dosage: UNK
     Route: 065
  5. ZINC. [Concomitant]
     Active Substance: ZINC
     Indication: ILL-DEFINED DISORDER
     Dosage: UNK
     Route: 065
  6. LEVOFLOXACIN 250 MG [Suspect]
     Active Substance: LEVOFLOXACIN
     Indication: ILL-DEFINED DISORDER
  7. ACCORD?UK METRONIDAZOLE [Concomitant]
     Indication: ILL-DEFINED DISORDER
     Dosage: UNK
     Route: 065
  8. ZINC. [Concomitant]
     Active Substance: ZINC
     Dosage: UNK
     Route: 065
  9. PARACETAMOL [Suspect]
     Active Substance: ACETAMINOPHEN
     Indication: TENDON PAIN
     Dosage: UNK
     Route: 065
  10. ZINC. [Concomitant]
     Active Substance: ZINC
     Dosage: UNK
     Route: 065
  11. ZINC. [Concomitant]
     Active Substance: ZINC
     Dosage: UNK
     Route: 065
  12. LEVOFLOXACIN 250 MG [Suspect]
     Active Substance: LEVOFLOXACIN
     Indication: HELICOBACTER INFECTION
     Dosage: 250 MILLIGRAM, BID
     Route: 048
     Dates: start: 20210209, end: 20210210
  13. PARACETAMOL [Suspect]
     Active Substance: ACETAMINOPHEN
     Indication: TENDON PAIN
  14. IBUPROFEN. [Suspect]
     Active Substance: IBUPROFEN
     Indication: TENDON PAIN

REACTIONS (5)
  - Tendon pain [Not Recovered/Not Resolved]
  - Blister [Recovering/Resolving]
  - Drug ineffective [Unknown]
  - Palpitations [Not Recovered/Not Resolved]
  - Adverse drug reaction [Recovering/Resolving]

NARRATIVE: CASE EVENT DATE: 20210210
